FAERS Safety Report 7220751-3 (Version None)
Quarter: 2011Q1

REPORT INFORMATION
  Report Type: 
  Country: None (occurrence: None)
  Receive Date: 20110111
  Receipt Date: 20110103
  Transmission Date: 20110831
  Serious: Yes (Other)
  Sender: FDA-Public Use
  Company Number: US-PFIZER INC-2011000956

PATIENT
  Sex: Female
  Weight: 73.016 kg

DRUGS (3)
  1. EFFEXOR [Suspect]
     Indication: DEPRESSION
     Dosage: UNK
  2. TRIAMTERENE [Concomitant]
     Indication: HYPERTENSION
     Dosage: UNK
  3. ACCUPRIL [Suspect]
     Indication: HYPERTENSION
     Dosage: UNK

REACTIONS (1)
  - GASTROOESOPHAGEAL REFLUX DISEASE [None]
